FAERS Safety Report 9034860 (Version 1)
Quarter: 2013Q1

REPORT INFORMATION
  Report Type: Spontaneous
  Country: AU (occurrence: None)
  Receive Date: 20130115
  Receipt Date: 20130115
  Transmission Date: 20140127
  Serious: Yes (Life-Threatening, Hospitalization, Other)
  Sender: FDA-Public Use
  Company Number: 1556450

PATIENT
  Age: 56 Year
  Sex: Male
  Weight: 60 kg

DRUGS (5)
  1. CYTARABINE [Suspect]
     Indication: ACUTE MYELOID LEUKAEMIA
     Dosage: 200  MG/M 2  MILLIGRAM (S) / SQ. METER?INTRAVENOUS  (NOT OTHERWISE SPECIFIED)?09/23/2012  -  UNKNOWN  ( UNKNOWN )
     Route: 042
     Dates: start: 20120923
  2. (VANCOMYCIN  HYDROCHLORIDE) [Suspect]
     Indication: FEBRILE NEUTROPENIA
     Dosage: 1 G  X  2,  UNKNOWN,  INTRAVENOUS  (NOT OTHERWISE SPECIFIED)?09/23/2012  -  UNKNOWN
     Route: 042
     Dates: start: 20120923
  3. CLOFARABINE [Suspect]
     Indication: ACUTE MYELOID LEUKAEMIA
     Dosage: 10  MG/M 2  MILLIGRAM (S) / SQ. METER  ( UNKNOWN )?09/23/2012  -  UNKNOWN  ( UNKNOWN )
     Route: 041
     Dates: start: 20120923
  4. IDARUBICIN [Suspect]
     Indication: ACUTE MYELOID LEUKAEMIA
     Dosage: 12 MG/M 2  MILLIGRAM (S) / SQ. METER ( UNKNOWN)?UNKNOWN?09/23/2012  -  UNKNONW  ( UNKNOWN)
     Dates: start: 20120923
  5. AMSACRINE [Suspect]
     Indication: ACUTE MYELOID LEUKAEMIA
     Dosage: 140  MG/ M 2  MILLIGRAM (S) / SQ.  METER  ( UNKNOWN)?INTRAVENOUS (NOT OTHERWISE SPECIFIED)?12/13/2012  -   UNKNOWN  ( UNKNOWN)
     Route: 042
     Dates: start: 20121213

REACTIONS (2)
  - Renal failure [None]
  - Bronchopulmonary aspergillosis [None]
